FAERS Safety Report 24981426 (Version 1)
Quarter: 2025Q1

REPORT INFORMATION
  Report Type: Spontaneous
  Country: IT (occurrence: IT)
  Receive Date: 20250218
  Receipt Date: 20250218
  Transmission Date: 20250408
  Serious: Yes (Other)
  Sender: Kenvue
  Company Number: None

PATIENT

DRUGS (1)
  1. IMODIUM [Suspect]
     Active Substance: LOPERAMIDE HYDROCHLORIDE
     Indication: Diarrhoea
     Route: 048
     Dates: start: 20250124, end: 20250124

REACTIONS (3)
  - Amnesia [Not Recovered/Not Resolved]
  - Confusional state [Recovered/Resolved]
  - Repetitive speech [Recovering/Resolving]

NARRATIVE: CASE EVENT DATE: 20250124
